FAERS Safety Report 14137646 (Version 2)
Quarter: 2017Q4

REPORT INFORMATION
  Report Type: Spontaneous
  Country: US (occurrence: US)
  Receive Date: 20171027
  Receipt Date: 20171106
  Transmission Date: 20180321
  Serious: Yes (Hospitalization, Other)
  Sender: FDA-Public Use
  Company Number: US-SAOL THERAPEUTICS-2017SAO01340

PATIENT
  Age: 29 Year
  Sex: Male
  Weight: 51.25 kg

DRUGS (2)
  1. BACLOFEN. [Suspect]
     Active Substance: BACLOFEN
     Indication: CEREBRAL PALSY
  2. BACLOFEN. [Suspect]
     Active Substance: BACLOFEN
     Indication: MUSCLE SPASTICITY
     Route: 037

REACTIONS (4)
  - Drug withdrawal syndrome [Unknown]
  - Urinary tract infection [Unknown]
  - Pain [Unknown]
  - Hallucination [Unknown]

NARRATIVE: CASE EVENT DATE: 20170810
